FAERS Safety Report 10424511 (Version 1)
Quarter: 2014Q3

REPORT INFORMATION
  Report Type: Spontaneous
  Country: ES (occurrence: ES)
  Receive Date: 20140902
  Receipt Date: 20140902
  Transmission Date: 20150326
  Serious: Yes (Other)
  Sender: FDA-Public Use
  Company Number: 2014SP002692

PATIENT
  Age: 44 Year
  Sex: Female

DRUGS (1)
  1. ZEBINIX (ESLICARBAZEPINE ACETATE) [Suspect]
     Active Substance: ESLICARBAZEPINE ACETATE
     Indication: TRIGEMINAL NEURALGIA
     Route: 048
     Dates: start: 20140715, end: 20140806

REACTIONS (2)
  - Off label use [None]
  - Pseudomononucleosis [Recovering/Resolving]

NARRATIVE: CASE EVENT DATE: 20140715
